FAERS Safety Report 19678400 (Version 2)
Quarter: 2021Q3

REPORT INFORMATION
  Report Type: Report from Study
  Country: CN (occurrence: CN)
  Receive Date: 20210809
  Receipt Date: 20210816
  Transmission Date: 20211014
  Serious: Yes (Hospitalization)
  Sender: FDA-Public Use
  Company Number: CN-KARYOPHARM-2021KPT001019

PATIENT
  Age: 67 Year
  Sex: Male

DRUGS (6)
  1. SELINEXOR [Suspect]
     Active Substance: SELINEXOR
     Dosage: 40 MG, SINGLE
     Route: 048
     Dates: start: 20210716, end: 20210716
  2. GEMCITABINE. [Suspect]
     Active Substance: GEMCITABINE
     Indication: PERIPHERAL T-CELL LYMPHOMA UNSPECIFIED
     Dosage: 1329 MG, SINGLE
     Route: 042
     Dates: start: 20210330, end: 20210330
  3. SELINEXOR [Suspect]
     Active Substance: SELINEXOR
     Indication: PERIPHERAL T-CELL LYMPHOMA UNSPECIFIED
     Dosage: 40 MG, SINGLE
     Route: 048
     Dates: start: 20210331, end: 20210331
  4. GEMCITABINE. [Suspect]
     Active Substance: GEMCITABINE
     Dosage: 1329 MG, SINGLE
     Route: 042
     Dates: start: 20210716, end: 20210716
  5. OXALIPLATIN. [Suspect]
     Active Substance: OXALIPLATIN
     Indication: PERIPHERAL T-CELL LYMPHOMA UNSPECIFIED
     Dosage: 177 MG, SINGLE
     Route: 042
     Dates: start: 20210330, end: 20210330
  6. OXALIPLATIN. [Suspect]
     Active Substance: OXALIPLATIN
     Dosage: 177 MG, SINGLE
     Route: 042
     Dates: start: 20210716, end: 20210716

REACTIONS (1)
  - Platelet count decreased [Recovered/Resolved]

NARRATIVE: CASE EVENT DATE: 20210724
